FAERS Safety Report 14508452 (Version 1)
Quarter: 2018Q1

REPORT INFORMATION
  Report Type: Spontaneous
  Country: US (occurrence: US)
  Receive Date: 20180209
  Receipt Date: 20180209
  Transmission Date: 20180509
  Serious: No
  Sender: FDA-Public Use
  Company Number: US-ENDO PHARMACEUTICALS INC-2017-002495

PATIENT
  Sex: Female

DRUGS (1)
  1. METHYLPREDNISOLONE TABLETS 4MG [Suspect]
     Active Substance: METHYLPREDNISOLONE
     Indication: RHEUMATOID ARTHRITIS
     Dosage: 1 DF, OD
     Route: 048

REACTIONS (3)
  - Peripheral swelling [Unknown]
  - Tinnitus [Unknown]
  - Feeling abnormal [Unknown]
